FAERS Safety Report 22090992 (Version 1)
Quarter: 2023Q1

REPORT INFORMATION
  Report Type: Report from Study
  Country: GB (occurrence: GB)
  Receive Date: 20230314
  Receipt Date: 20230314
  Transmission Date: 20230418
  Serious: Yes (Other)
  Sender: FDA-Public Use
  Company Number: GB-002147023-NVSC2023GB039993

PATIENT
  Sex: Female

DRUGS (1)
  1. KESIMPTA [Suspect]
     Active Substance: OFATUMUMAB
     Indication: Multiple sclerosis
     Dosage: 20 MG, QMO (WEEKLY FOR FIRST MONTH (NOT WEEK 3) THEN MONTHLY)
     Route: 058
     Dates: start: 20230216

REACTIONS (8)
  - Optic neuritis [Unknown]
  - Vision blurred [Unknown]
  - Neck pain [Unknown]
  - Headache [Unknown]
  - Multiple sclerosis relapse [Unknown]
  - Illness [Recovered/Resolved]
  - Dizziness [Recovered/Resolved]
  - Injection site bruising [Recovered/Resolved]
